FAERS Safety Report 14745786 (Version 3)
Quarter: 2018Q2

REPORT INFORMATION
  Report Type: Spontaneous
  Country: US (occurrence: US)
  Receive Date: 20180411
  Receipt Date: 20180605
  Transmission Date: 20180711
  Serious: No
  Sender: FDA-Public Use
  Company Number: US-GLAXOSMITHKLINE-US2018060693

PATIENT
  Age: 66 Year
  Sex: Female

DRUGS (3)
  1. ADVAIR DISKUS [Suspect]
     Active Substance: FLUTICASONE PROPIONATE\SALMETEROL XINAFOATE
     Indication: ASTHMA
     Dosage: 1 PUFF(S), BID
     Route: 055
     Dates: start: 2013
  2. ALBUTEROL. [Concomitant]
     Active Substance: ALBUTEROL
  3. LYRICA [Concomitant]
     Active Substance: PREGABALIN

REACTIONS (6)
  - Cough [Not Recovered/Not Resolved]
  - Drug effect decreased [Unknown]
  - Chest discomfort [Not Recovered/Not Resolved]
  - Product quality issue [Unknown]
  - Dyspnoea [Not Recovered/Not Resolved]
  - Overdose [Unknown]

NARRATIVE: CASE EVENT DATE: 20180406
